FAERS Safety Report 12611548 (Version 1)
Quarter: 2016Q3

REPORT INFORMATION
  Report Type: Spontaneous
  Country: US (occurrence: US)
  Receive Date: 20160801
  Receipt Date: 20160801
  Transmission Date: 20161109
  Serious: Yes (Hospitalization, Other)
  Sender: FDA-Public Use
  Company Number: US-B.I. PHARMACEUTICALS,INC./RIDGEFIELD-2016-BI-48901BP

PATIENT
  Sex: Female

DRUGS (1)
  1. SPIRIVA [Suspect]
     Active Substance: TIOTROPIUM BROMIDE MONOHYDRATE
     Indication: CHRONIC OBSTRUCTIVE PULMONARY DISEASE
     Dosage: 18 MCG
     Route: 055
     Dates: start: 2013

REACTIONS (14)
  - Palpitations [Recovered/Resolved]
  - Contusion [Recovered/Resolved]
  - Cardiac disorder [Recovered/Resolved]
  - Chest discomfort [Recovered/Resolved]
  - Pain in extremity [Recovered/Resolved]
  - Dry mouth [Not Recovered/Not Resolved]
  - Road traffic accident [Recovered/Resolved]
  - Unevaluable event [Unknown]
  - Tongue dry [Recovered/Resolved]
  - Dysarthria [Recovered/Resolved]
  - Basal cell carcinoma [Not Recovered/Not Resolved]
  - Heart rate abnormal [Recovered/Resolved]
  - Atrial fibrillation [Not Recovered/Not Resolved]
  - Arthralgia [Recovered/Resolved]

NARRATIVE: CASE EVENT DATE: 2013
